FAERS Safety Report 7482076-0 (Version None)
Quarter: 2011Q2

REPORT INFORMATION
  Report Type: 
  Country: None (occurrence: None)
  Receive Date: 20110516
  Receipt Date: 20110512
  Transmission Date: 20111010
  Serious: Yes (Death, Hospitalization)
  Sender: FDA-Public Use
  Company Number: PHHY2011GB40054

PATIENT
  Age: 76 Year
  Sex: Male
  Weight: 80 kg

DRUGS (3)
  1. CLOPIDOGREL [Suspect]
     Indication: ACUTE MYOCARDIAL INFARCTION
     Dosage: 75 MG DAILY
     Dates: start: 20110303, end: 20110308
  2. SIMVASTATIN [Suspect]
     Indication: ACUTE MYOCARDIAL INFARCTION
     Dosage: 40 MG DAILY
     Dates: start: 20110302, end: 20110308
  3. FUROSEMIDE [Suspect]
     Indication: ACUTE MYOCARDIAL INFARCTION
     Dosage: 20 MG DAILY
     Dates: start: 20110304, end: 20110307

REACTIONS (3)
  - LETHARGY [None]
  - ABDOMINAL PAIN UPPER [None]
  - LIVER INJURY [None]
